FAERS Safety Report 6212449-5 (Version None)
Quarter: 2009Q2

REPORT INFORMATION
  Report Type: 
  Country: None (occurrence: None)
  Receive Date: 20090603
  Receipt Date: 20090528
  Transmission Date: 20091009
  Serious: Yes (Hospitalization)
  Sender: FDA-Public Use
  Company Number: JP-EISAI INC.-E2090-00747-SPO-JP

PATIENT
  Age: 64 Year
  Sex: Male

DRUGS (4)
  1. EXCEGRAN [Suspect]
     Indication: EPILEPSY
     Route: 048
     Dates: start: 20090424, end: 20090515
  2. ZYLORIC [Suspect]
     Indication: DRUG USE FOR UNKNOWN INDICATION
     Route: 048
     Dates: start: 20090424, end: 20090515
  3. GASTER D [Concomitant]
     Route: 048
     Dates: end: 20090515
  4. MICARDIS [Concomitant]
     Route: 048
     Dates: end: 20090515

REACTIONS (1)
  - STEVENS-JOHNSON SYNDROME [None]
